FAERS Safety Report 6035913-0 (Version None)
Quarter: 2009Q1

REPORT INFORMATION
  Report Type: 
  Country: None (occurrence: None)
  Receive Date: 20090113
  Receipt Date: 20090108
  Transmission Date: 20090719
  Serious: Yes (Hospitalization, Other)
  Sender: FDA-Public Use
  Company Number: A0761130A

PATIENT
  Age: 64 Year
  Sex: Male
  Weight: 88.5 kg

DRUGS (10)
  1. MELPHALAN [Suspect]
     Indication: NON-HODGKIN'S LYMPHOMA
     Dosage: 279MG UNKNOWN
     Route: 042
     Dates: start: 20070521, end: 20070521
  2. VELCADE [Suspect]
     Indication: NON-HODGKIN'S LYMPHOMA
     Dosage: 1.5MGM2 CYCLIC
     Route: 040
     Dates: start: 20070511, end: 20070520
  3. RITUXIMAB [Suspect]
     Indication: NON-HODGKIN'S LYMPHOMA
     Route: 065
     Dates: start: 20070426, end: 20070503
  4. CARMUSTINE [Suspect]
     Indication: NON-HODGKIN'S LYMPHOMA
     Dosage: 590MG UNKNOWN
     Route: 042
     Dates: start: 20070516, end: 20070516
  5. ETOPOSIDE [Suspect]
     Indication: NON-HODGKIN'S LYMPHOMA
     Dosage: 197MG UNKNOWN
     Route: 042
     Dates: start: 20070517, end: 20070520
  6. CYTARABINE [Suspect]
     Indication: NON-HODGKIN'S LYMPHOMA
     Route: 042
     Dates: start: 20070517, end: 20070520
  7. METOPROLOL [Concomitant]
  8. NEURONTIN [Concomitant]
  9. TYLENOL W/ CODEINE [Concomitant]
  10. LISINOPRIL [Concomitant]

REACTIONS (4)
  - HAEMOGLOBIN DECREASED [None]
  - NEUTROPENIA [None]
  - PLATELET COUNT DECREASED [None]
  - PYREXIA [None]
